FAERS Safety Report 15826795 (Version 2)
Quarter: 2019Q1

REPORT INFORMATION
  Report Type: Spontaneous
  Country: US (occurrence: US)
  Receive Date: 20190115
  Receipt Date: 20190130
  Transmission Date: 20190417
  Serious: Yes (Other)
  Sender: FDA-Public Use
  Company Number: US-AKORN PHARMACEUTICALS-2019AKN00014

PATIENT
  Age: 33 Year
  Sex: Male
  Weight: 61 kg

DRUGS (3)
  1. MYORISAN [Suspect]
     Active Substance: ISOTRETINOIN
     Indication: ACNE
     Dosage: 60 MG, 1X/DAY
     Dates: start: 20180809, end: 20181119
  2. MYORISAN [Suspect]
     Active Substance: ISOTRETINOIN
     Dosage: 60 MG, 1X/DAY
     Dates: start: 2018, end: 20181119
  3. MYORISAN [Suspect]
     Active Substance: ISOTRETINOIN
     Indication: ACNE
     Dosage: 40 MG, 1X/DAY
     Dates: start: 20180713, end: 2018

REACTIONS (4)
  - Off label use [Recovered/Resolved]
  - Mood altered [Recovered/Resolved]
  - Anger [Recovered/Resolved]
  - Irritability [Recovered/Resolved]

NARRATIVE: CASE EVENT DATE: 2018
